FAERS Safety Report 4649910-0 (Version None)
Quarter: 2005Q2

REPORT INFORMATION
  Report Type: 
  Country: None (occurrence: None)
  Receive Date: 20050428
  Receipt Date: 20050414
  Transmission Date: 20051028
  Serious: Yes (Hospitalization, Other)
  Sender: FDA-Public Use
  Company Number: H-CH2005-09102

PATIENT
  Age: 24 Year
  Sex: Female
  Weight: 62 kg

DRUGS (4)
  1. BOSENTAN (BOSENTAN) TABLET [Suspect]
     Indication: PULMONARY HYPERTENSION
     Dosage: SEE IMAGE
     Route: 048
     Dates: start: 20040402, end: 20040428
  2. BOSENTAN (BOSENTAN) TABLET [Suspect]
     Indication: PULMONARY HYPERTENSION
     Dosage: SEE IMAGE
     Route: 048
     Dates: start: 20040429, end: 20050403
  3. BOSENTAN (BOSENTAN) TABLET [Suspect]
     Indication: PULMONARY HYPERTENSION
     Dosage: SEE IMAGE
     Route: 048
     Dates: start: 20050404, end: 20050418
  4. WARFARIN SODIUM [Concomitant]

REACTIONS (3)
  - ABORTION SPONTANEOUS [None]
  - DRUG EXPOSURE DURING PREGNANCY [None]
  - PREGNANCY [None]
